FAERS Safety Report 10234452 (Version 1)
Quarter: 2014Q2

REPORT INFORMATION
  Report Type: Spontaneous
  Country: US (occurrence: US)
  Receive Date: 20140613
  Receipt Date: 20140613
  Transmission Date: 20141212
  Serious: Yes (Death, Other)
  Sender: FDA-Public Use
  Company Number: US-AMGEN INC.-USASP2014043044

PATIENT
  Sex: 0

DRUGS (1)
  1. PROCRIT [Suspect]
     Indication: PRODUCT USED FOR UNKNOWN INDICATION
     Dosage: 7500 UNIT, UNK
     Route: 065

REACTIONS (8)
  - Death [Fatal]
  - Volume blood increased [Unknown]
  - Therapeutic response decreased [Unknown]
  - Neoplasm progression [Unknown]
  - Thrombosis [Unknown]
  - Cerebrovascular accident [Unknown]
  - Myocardial infarction [Unknown]
  - Embolism venous [Unknown]
